FAERS Safety Report 15156492 (Version 3)
Quarter: 2018Q3

REPORT INFORMATION
  Report Type: Report from Study
  Country: None (occurrence: US)
  Receive Date: 20180717
  Receipt Date: 20180903
  Transmission Date: 20181010
  Serious: Yes (Hospitalization, Other)
  Sender: FDA-Public Use
  Company Number: US-ABBVIE-18K-163-2421412-00

PATIENT
  Age: 23 Year
  Sex: Female
  Weight: 70.37 kg

DRUGS (6)
  1. XANAX [Concomitant]
     Active Substance: ALPRAZOLAM
     Indication: ANXIETY
  2. ACETAMINOPHEN. [Concomitant]
     Active Substance: ACETAMINOPHEN
     Indication: PAIN
  3. HYDROCODONE [Concomitant]
     Active Substance: HYDROCODONE
     Indication: PAIN
  4. HUMIRA [Suspect]
     Active Substance: ADALIMUMAB
     Indication: PSORIATIC ARTHROPATHY
     Route: 058
     Dates: start: 2009, end: 201807
  5. HUMIRA [Suspect]
     Active Substance: ADALIMUMAB
     Indication: PSORIASIS
  6. XANAX [Concomitant]
     Active Substance: ALPRAZOLAM
     Indication: PANIC ATTACK

REACTIONS (31)
  - Seizure [Recovered/Resolved]
  - Amnesia [Not Recovered/Not Resolved]
  - Hyperhidrosis [Recovered/Resolved]
  - Hyperhidrosis [Unknown]
  - Chest pain [Unknown]
  - Therapeutic response shortened [Unknown]
  - Genital neoplasm malignant female [Recovered/Resolved]
  - Feeling of body temperature change [Unknown]
  - Anxiety [Not Recovered/Not Resolved]
  - Intervertebral disc protrusion [Not Recovered/Not Resolved]
  - Malaise [Recovered/Resolved]
  - Hyperaesthesia [Unknown]
  - Pneumonia [Not Recovered/Not Resolved]
  - Dyspnoea [Recovering/Resolving]
  - Muscle spasms [Unknown]
  - Abdominal discomfort [Recovered/Resolved]
  - Cold sweat [Recovered/Resolved]
  - Photosensitivity reaction [Unknown]
  - Blindness [Not Recovered/Not Resolved]
  - Feeling hot [Recovered/Resolved]
  - Nerve injury [Unknown]
  - Nodule [Unknown]
  - Pain [Unknown]
  - Intra-abdominal haemorrhage [Recovered/Resolved]
  - Fibromyalgia [Not Recovered/Not Resolved]
  - Post procedural haemorrhage [Unknown]
  - Panic attack [Not Recovered/Not Resolved]
  - Road traffic accident [Recovered/Resolved]
  - Urinary tract infection [Not Recovered/Not Resolved]
  - Tremor [Not Recovered/Not Resolved]
  - Pyrexia [Unknown]

NARRATIVE: CASE EVENT DATE: 2009
